FAERS Safety Report 5942802-6 (Version None)
Quarter: 2008Q4

REPORT INFORMATION
  Report Type: 
  Country: None (occurrence: None)
  Receive Date: 20081103
  Receipt Date: 20081024
  Transmission Date: 20090506
  Serious: Yes (Hospitalization)
  Sender: FDA-Public Use
  Company Number: 2005BI022363

PATIENT
  Age: 48 Year
  Sex: Female

DRUGS (3)
  1. AVONEX [Suspect]
     Indication: MULTIPLE SCLEROSIS
     Dosage: IM, IM, 30 UG; QW; IM
     Route: 030
     Dates: start: 20000101, end: 20000430
  2. AVONEX [Suspect]
     Indication: MULTIPLE SCLEROSIS
     Dosage: IM, IM, 30 UG; QW; IM
     Route: 030
     Dates: end: 20030101
  3. AVONEX [Suspect]
     Indication: MULTIPLE SCLEROSIS
     Dosage: IM, IM, 30 UG; QW; IM
     Route: 030
     Dates: start: 20051201, end: 20051208

REACTIONS (4)
  - COLONIC PSEUDO-OBSTRUCTION [None]
  - IRRITABILITY [None]
  - OBSTRUCTION GASTRIC [None]
  - WEIGHT DECREASED [None]
